FAERS Safety Report 5475283-X (Version None)
Quarter: 2007Q4

REPORT INFORMATION
  Report Type: 
  Country: None (occurrence: None)
  Receive Date: 20071002
  Receipt Date: 20070926
  Transmission Date: 20080405
  Serious: Yes (Other)
  Sender: FDA-Public Use
  Company Number: US-MERCK-0709USA04460

PATIENT
  Age: 75 Year
  Sex: Female

DRUGS (5)
  1. FOSAMAX [Suspect]
     Indication: OSTEOPOROSIS
     Route: 048
     Dates: start: 20040601
  2. COREG [Concomitant]
     Route: 065
  3. LIPITOR [Concomitant]
     Route: 065
  4. NEXIUM [Concomitant]
     Route: 065
  5. COZAAR [Concomitant]
     Route: 048

REACTIONS (2)
  - BONE DENSITY DECREASED [None]
  - CARDIAC DISORDER [None]
